FAERS Safety Report 9982086 (Version 1)
Quarter: 2014Q1

REPORT INFORMATION
  Report Type: Report from Study
  Country: US (occurrence: US)
  Receive Date: 20140307
  Receipt Date: 20140307
  Transmission Date: 20141002
  Serious: No
  Sender: FDA-Public Use
  Company Number: US-ABBVIE-13P-163-1178574-00

PATIENT
  Age: 66 Year
  Sex: Female
  Weight: 49.03 kg

DRUGS (7)
  1. HUMIRA [Suspect]
     Indication: PSORIASIS
     Dates: start: 201311
  2. HUMIRA [Suspect]
     Dates: start: 20131204, end: 20131204
  3. ATENOLOL [Concomitant]
     Indication: HYPERTENSION
  4. METFORMIN [Concomitant]
     Indication: DIABETES MELLITUS
  5. PREDNISONE [Concomitant]
     Indication: PSORIASIS
  6. METHOTREXATE [Concomitant]
     Indication: PSORIASIS
  7. HYDROXYZINE [Concomitant]
     Indication: PRURITUS

REACTIONS (5)
  - Skin exfoliation [Not Recovered/Not Resolved]
  - Diarrhoea [Recovered/Resolved]
  - Abdominal pain upper [Recovered/Resolved]
  - Psoriasis [Not Recovered/Not Resolved]
  - Headache [Recovered/Resolved]
